FAERS Safety Report 8798765 (Version 2)
Quarter: 2015Q2

REPORT INFORMATION
  Report Type: Report from Study
  Country: US (occurrence: US)
  Receive Date: 20120920
  Receipt Date: 20150407
  Transmission Date: 20150821
  Serious: Yes (Death)
  Sender: FDA-Public Use
  Company Number: US-ROCHE-1102410

PATIENT
  Sex: Male

DRUGS (4)
  1. AVASTIN [Suspect]
     Active Substance: BEVACIZUMAB
     Indication: GASTRIC CANCER
     Route: 042
  2. CISPLATIN. [Concomitant]
     Active Substance: CISPLATIN
  3. GEMZAR [Concomitant]
     Active Substance: GEMCITABINE HYDROCHLORIDE
  4. CPT-11 [Concomitant]
     Active Substance: IRINOTECAN

REACTIONS (5)
  - Death [Fatal]
  - Haemorrhoids [Unknown]
  - Off label use [Unknown]
  - Constipation [Unknown]
  - Gastrointestinal haemorrhage [Unknown]
